FAERS Safety Report 4603347-9 (Version None)
Quarter: 2005Q1

REPORT INFORMATION
  Report Type: 
  Country: None (occurrence: None)
  Receive Date: 20050308
  Receipt Date: 20050223
  Transmission Date: 20050727
  Serious: Yes (Hospitalization, Other)
  Sender: FDA-Public Use
  Company Number: 2005026797

PATIENT
  Age: 70 Year
  Sex: Male

DRUGS (1)
  1. VIAGRA [Suspect]
     Indication: ERECTILE DYSFUNCTION
     Dosage: 100 MG (100 MG, AS NECESSARY), ORAL
     Route: 048
     Dates: start: 20010101

REACTIONS (5)
  - DRUG EFFECT DECREASED [None]
  - ERECTILE DYSFUNCTION [None]
  - INCONTINENCE [None]
  - POST PROCEDURAL COMPLICATION [None]
  - PROSTATE CANCER [None]
